FAERS Safety Report 8807073 (Version 3)
Quarter: 2013Q1

REPORT INFORMATION
  Report Type: Report from Study
  Country: FR (occurrence: FR)
  Receive Date: 20120925
  Receipt Date: 20130308
  Transmission Date: 20140127
  Serious: Yes (Death, Hospitalization)
  Sender: FDA-Public Use
  Company Number: FR-ROCHE-1125304

PATIENT
  Age: 69 Year
  Sex: Male
  Weight: 45 kg

DRUGS (2)
  1. RITUXIMAB [Suspect]
     Indication: B-CELL LYMPHOMA
     Route: 042
     Dates: start: 20051117, end: 20070913
  2. ZEVALIN [Concomitant]
     Route: 065

REACTIONS (4)
  - Cardio-respiratory arrest [Fatal]
  - Gastrointestinal haemorrhage [Fatal]
  - Hypothermia [Fatal]
  - Bronchitis [Unknown]
